FAERS Safety Report 13728641 (Version 2)
Quarter: 2017Q3

REPORT INFORMATION
  Report Type: Spontaneous
  Country: US (occurrence: US)
  Receive Date: 20170707
  Receipt Date: 20170918
  Transmission Date: 20171127
  Serious: Yes (Hospitalization, Other)
  Sender: FDA-Public Use
  Company Number: US-AMGEN-USASP2017100563

PATIENT
  Sex: Female

DRUGS (5)
  1. SULFASALAZINE. [Suspect]
     Active Substance: SULFASALAZINE
     Indication: PRODUCT USED FOR UNKNOWN INDICATION
     Dosage: UNK
     Route: 065
  2. FUROSEMIDE. [Concomitant]
     Active Substance: FUROSEMIDE
     Dosage: UNK
  3. ENBREL [Suspect]
     Active Substance: ETANERCEPT
     Indication: PRODUCT USED FOR UNKNOWN INDICATION
     Dosage: UNK
     Route: 065
     Dates: end: 201702
  4. MTX [Suspect]
     Active Substance: METHOTREXATE SODIUM
     Indication: PRODUCT USED FOR UNKNOWN INDICATION
     Dosage: UNK
     Route: 065
  5. XELJANZ XR [Suspect]
     Active Substance: TOFACITINIB CITRATE
     Indication: PRODUCT USED FOR UNKNOWN INDICATION
     Dosage: 11 MG, UNK
     Route: 065

REACTIONS (23)
  - Pain in extremity [Unknown]
  - Skin hyperpigmentation [Unknown]
  - Dry skin [Unknown]
  - Joint effusion [Unknown]
  - Weight increased [Unknown]
  - Arthralgia [Unknown]
  - Erythema [Unknown]
  - Stevens-Johnson syndrome [Unknown]
  - Joint range of motion decreased [Unknown]
  - Oedema peripheral [Unknown]
  - Back pain [Unknown]
  - Red blood cell sedimentation rate increased [Unknown]
  - Skin plaque [Unknown]
  - Ecchymosis [Unknown]
  - Musculoskeletal pain [Unknown]
  - Cardiac failure congestive [Unknown]
  - Neck pain [Unknown]
  - Musculoskeletal stiffness [Unknown]
  - Dyspnoea exertional [Unknown]
  - Joint crepitation [Unknown]
  - Varicose vein [Unknown]
  - Blood pressure increased [Unknown]
  - Alopecia [Unknown]
